FAERS Safety Report 10144994 (Version 5)
Quarter: 2014Q4

REPORT INFORMATION
  Report Type: Report from Study
  Country: CA (occurrence: CA)
  Receive Date: 20140501
  Receipt Date: 20141016
  Transmission Date: 20150528
  Serious: Yes (Hospitalization, Other)
  Sender: FDA-Public Use
  Company Number: CA-ROCHE-1259710

PATIENT
  Age: 61 Year
  Sex: Female
  Weight: 70.5 kg

DRUGS (13)
  1. HYDROCHLOROTHIAZIDE. [Concomitant]
     Active Substance: HYDROCHLOROTHIAZIDE
  2. ROSUVASTATIN [Concomitant]
     Active Substance: ROSUVASTATIN
  3. VITAMIN B12 [Concomitant]
     Active Substance: CYANOCOBALAMIN
  4. RAMIPRIL. [Concomitant]
     Active Substance: RAMIPRIL
     Route: 065
     Dates: start: 20130604
  5. SENOKOT [Concomitant]
     Active Substance: SENNOSIDES
  6. AVASTIN [Suspect]
     Active Substance: BEVACIZUMAB
     Route: 042
     Dates: start: 20140416
  7. PREVACID [Concomitant]
     Active Substance: LANSOPRAZOLE
  8. MORPHINE SYRUP [Concomitant]
  9. DALTEPARIN [Concomitant]
     Active Substance: DALTEPARIN
  10. WELLBUTRIN [Concomitant]
     Active Substance: BUPROPION HYDROCHLORIDE
  11. LETROZOLE. [Concomitant]
     Active Substance: LETROZOLE
     Route: 065
     Dates: start: 20130604
  12. AVASTIN [Suspect]
     Active Substance: BEVACIZUMAB
     Indication: OVARIAN CANCER
     Route: 042
     Dates: start: 20130802
  13. DOCUSATE [Concomitant]
     Active Substance: DOCUSATE

REACTIONS (8)
  - Headache [Recovered/Resolved]
  - Drug ineffective [Unknown]
  - Intestinal obstruction [Recovered/Resolved]
  - Lymphoedema [Recovering/Resolving]
  - Product use issue [Unknown]
  - Dyspnoea [Unknown]
  - Pain [Unknown]
  - Chest pain [Recovered/Resolved]

NARRATIVE: CASE EVENT DATE: 20130803
